FAERS Safety Report 4291609-7 (Version None)
Quarter: 2004Q1

REPORT INFORMATION
  Report Type: 
  Country: None (occurrence: None)
  Receive Date: 20040210
  Receipt Date: 20040210
  Transmission Date: 20041129
  Serious: Yes (Hospitalization)
  Sender: FDA-Public Use
  Company Number: None

PATIENT
  Sex: Male
  Weight: 109 kg

DRUGS (9)
  1. DROTRECOGIN [Suspect]
     Indication: SEPSIS
     Dosage: 2MCG/KG/HR INFUSION
     Dates: start: 20040131, end: 20040202
  2. PANCRELIPASE [Concomitant]
  3. CALCIUM ACETATE [Concomitant]
  4. METOCLOPRAMIDE [Concomitant]
  5. MORPHINE [Concomitant]
  6. CEFTAZIDIME SODIUM [Concomitant]
  7. FLUCONAZOLE [Concomitant]
  8. METRONIDAZOLE [Concomitant]
  9. VANCOMYCIN [Concomitant]

REACTIONS (1)
  - CATHETER SITE HAEMORRHAGE [None]
